FAERS Safety Report 7394409-4 (Version None)
Quarter: 2011Q2

REPORT INFORMATION
  Report Type: 
  Country: None (occurrence: None)
  Receive Date: 20110405
  Receipt Date: 20110322
  Transmission Date: 20111010
  Serious: Yes (Other)
  Sender: FDA-Public Use
  Company Number: PHHY2011US01989

PATIENT
  Sex: Female

DRUGS (9)
  1. SINGULAIR [Concomitant]
     Dosage: 10 MG, UNK
  2. FUROSEMIDE [Concomitant]
     Dosage: 40 MG, UNK
  3. LISINOPRIL [Concomitant]
     Dosage: 40 MG, UNK
  4. RITANA [Concomitant]
     Dosage: 25 MG, UNK
  5. VERAPAMIL [Concomitant]
     Dosage: 120 MG, UNK
  6. TEKTURNA [Suspect]
     Indication: HYPERTENSION
     Dosage: 300 MG, QD
     Route: 048
  7. HUMALOG [Concomitant]
     Dosage: UNK
  8. ADVAIR DISKUS 100/50 [Concomitant]
     Dosage: 250 MG, UNK
  9. METFORMIN [Concomitant]
     Dosage: UNK

REACTIONS (3)
  - ASTHMA [None]
  - DIARRHOEA [None]
  - COUGH [None]
